FAERS Safety Report 9188418 (Version 1)
Quarter: 2012Q4

REPORT INFORMATION
  Report Type: 
  Country: FR (occurrence: FR)
  Receive Date: 20121205
  Receipt Date: 20121205
  Transmission Date: 20130627
  Serious: Yes (Hospitalization)
  Sender: FDA-Public Use
  Company Number: PHHY2012FR111016

PATIENT
  Age: 55 Year
  Sex: Female

DRUGS (2)
  1. TASIGNA [Suspect]
     Indication: CHRONIC MYELOID LEUKAEMIA
     Dosage: 300 mg, QD
     Route: 048
     Dates: start: 2009, end: 201104
  2. TASIGNA [Suspect]
     Dosage: 200 mg, QD
     Route: 048
     Dates: start: 201104

REACTIONS (3)
  - Hypothyroidism [Recovered/Resolved]
  - Musculoskeletal pain [Recovered/Resolved]
  - Blood creatine phosphokinase increased [Recovered/Resolved]
